FAERS Safety Report 11957292 (Version 2)
Quarter: 2016Q1

REPORT INFORMATION
  Report Type: Spontaneous
  Country: FR (occurrence: FR)
  Receive Date: 20160126
  Receipt Date: 20160129
  Transmission Date: 20160526
  Serious: Yes (Death, Life-Threatening, Hospitalization, Other)
  Sender: FDA-Public Use
  Company Number: FR-PFIZER INC-2016034518

PATIENT
  Age: 68 Year
  Sex: Male
  Weight: 50 kg

DRUGS (9)
  1. INEXIUM [Suspect]
     Active Substance: ESOMEPRAZOLE
     Dosage: 20 MG, DAILY
     Route: 048
  2. CORDARONE [Suspect]
     Active Substance: AMIODARONE HYDROCHLORIDE
     Dosage: 200 MG, DAILY
     Route: 048
  3. CELLCEPT [Suspect]
     Active Substance: MYCOPHENOLATE MOFETIL\MYCOPHENOLATE MOFETIL HYDROCHLORIDE
     Dosage: 500 MG, 2X/DAY
     Route: 048
  4. NEBILOX [Suspect]
     Active Substance: NEBIVOLOL HYDROCHLORIDE
     Dosage: 2.5 MG, DAILY
     Route: 048
  5. HARVONI [Suspect]
     Active Substance: LEDIPASVIR\SOFOSBUVIR
     Dosage: 1 DF, DAILY
     Route: 048
     Dates: start: 20150924
  6. TAHOR [Suspect]
     Active Substance: ATORVASTATIN CALCIUM
     Dosage: 10 MG, DAILY
     Route: 048
  7. PLAVIX [Suspect]
     Active Substance: CLOPIDOGREL BISULFATE
     Dosage: 75 MG, DAILY
     Route: 048
  8. VIREAD [Suspect]
     Active Substance: TENOFOVIR DISOPROXIL FUMARATE
     Dosage: 0.5 DF, ALTERNATE DAY
     Route: 048
  9. CORTANCYL [Suspect]
     Active Substance: PREDNISONE
     Dosage: 7 MG, DAILY
     Route: 048

REACTIONS (15)
  - Cardio-respiratory arrest [Fatal]
  - Seizure [Fatal]
  - Multiple organ dysfunction syndrome [Unknown]
  - Carotid artery aneurysm [Unknown]
  - Blood lactate dehydrogenase increased [Unknown]
  - Chest pain [Unknown]
  - Dizziness [Not Recovered/Not Resolved]
  - Carotid artery thrombosis [Unknown]
  - Thoracic vertebral fracture [Unknown]
  - Osteoporosis [Unknown]
  - Pulseless electrical activity [Recovered/Resolved]
  - Pneumonia aspiration [Fatal]
  - Acute coronary syndrome [Unknown]
  - Cerebellar syndrome [Not Recovered/Not Resolved]
  - Vertigo [Unknown]

NARRATIVE: CASE EVENT DATE: 201503
